FAERS Safety Report 4352905-8 (Version None)
Quarter: 2004Q2

REPORT INFORMATION
  Report Type: 
  Country: None (occurrence: None)
  Receive Date: 20040429
  Receipt Date: 20040414
  Transmission Date: 20050107
  Serious: Yes (Death, Hospitalization)
  Sender: FDA-Public Use
  Company Number: 2004-0006932

PATIENT
  Age: 58 Year
  Sex: Female

DRUGS (3)
  1. VIREAD [Suspect]
     Indication: HIV INFECTION
  2. STAVUDINE (STAVUDINE) [Suspect]
     Indication: HIV INFECTION
  3. DIDANOSINE (DIDANOSINE) [Suspect]
     Indication: HIV INFECTION

REACTIONS (10)
  - BLOOD PRESSURE INCREASED [None]
  - BODY TEMPERATURE DECREASED [None]
  - CARDIAC ARREST [None]
  - DIALYSIS [None]
  - DISORIENTATION [None]
  - HEART RATE INCREASED [None]
  - HYPOTENSION [None]
  - LACTIC ACIDOSIS [None]
  - PANCREATITIS ACUTE [None]
  - RESPIRATORY FAILURE [None]
